FAERS Safety Report 7801325-X (Version None)
Quarter: 2011Q4

REPORT INFORMATION
  Report Type: 
  Country: None (occurrence: None)
  Receive Date: 20111006
  Receipt Date: 20111006
  Transmission Date: 20120403
  Serious: Yes (Hospitalization)
  Sender: FDA-Public Use
  Company Number: None

PATIENT
  Age: 40 Year
  Sex: Female
  Weight: 109.4 kg

DRUGS (5)
  1. COUMADIN [Concomitant]
  2. VANCOMYCIN [Suspect]
     Indication: SEPSIS
     Dosage: 1.5 G VARIES IV
     Route: 042
     Dates: start: 20110511, end: 20110514
  3. VANCOMYCIN [Suspect]
     Indication: EMPYEMA
     Dosage: 1.5 G VARIES IV
     Route: 042
     Dates: start: 20110511, end: 20110514
  4. PERCOCET [Concomitant]
  5. TORADOL [Suspect]
     Indication: PAIN
     Dosage: 15MG Q6 X 4 IV
     Route: 042
     Dates: start: 20110512, end: 20110513

REACTIONS (2)
  - RENAL FAILURE ACUTE [None]
  - LUNG ABSCESS [None]
